FAERS Safety Report 18483742 (Version 1)
Quarter: 2020Q4

REPORT INFORMATION
  Report Type: Spontaneous
  Country: US (occurrence: US)
  Receive Date: 20201110
  Receipt Date: 20201110
  Transmission Date: 20210114
  Serious: Yes (Other)
  Sender: FDA-Public Use
  Company Number: US-SUN PHARMACEUTICAL INDUSTRIES LTD-2020R1-267190

PATIENT
  Age: 64 Year
  Sex: Female

DRUGS (4)
  1. PREDNISONE. [Suspect]
     Active Substance: PREDNISONE
     Indication: HEADACHE
     Dosage: UNK, DAILY(20-60 MG)
     Route: 065
  2. PREDNISONE. [Suspect]
     Active Substance: PREDNISONE
     Indication: ARACHNOID CYST
     Dosage: 60 MILLIGRAM, DAILY
     Route: 065
  3. ALBENDAZOLE. [Concomitant]
     Active Substance: ALBENDAZOLE
     Indication: HEADACHE
     Route: 065
  4. ALBENDAZOLE. [Concomitant]
     Active Substance: ALBENDAZOLE
     Indication: ARACHNOID CYST

REACTIONS (1)
  - Disease recurrence [Recovered/Resolved]
